FAERS Safety Report 9752119 (Version 2)
Quarter: 2013Q4

REPORT INFORMATION
  Report Type: Spontaneous
  Country: SE (occurrence: SE)
  Receive Date: 20131213
  Receipt Date: 20131218
  Transmission Date: 20140711
  Serious: Yes (Death)
  Sender: FDA-Public Use
  Company Number: PHHY2013SE145682

PATIENT
  Age: 32 Year
  Sex: Male

DRUGS (8)
  1. RITALINE [Suspect]
     Dosage: 360 MG, DAILY
  2. RITALIN [Suspect]
     Indication: OFF LABEL USE
     Dosage: 260 MG, UNK
  3. LYRICA [Concomitant]
     Dosage: 900 MG, DAILY
  4. CYMBALTA [Concomitant]
     Dosage: 60 MG, UNK
  5. SEROQUEL [Concomitant]
     Dosage: 400 UG, UNK
  6. NITRAZEPAM [Concomitant]
     Dosage: 10 MG, UNK
  7. SUBOXONE [Concomitant]
     Dosage: UNK UKN, UNK
  8. NEBIDO [Concomitant]
     Dosage: UNK UKN, UNK

REACTIONS (1)
  - Completed suicide [Fatal]
